FAERS Safety Report 4710942-5 (Version None)
Quarter: 2005Q3

REPORT INFORMATION
  Report Type: 
  Country: None (occurrence: None)
  Receive Date: 20050706
  Receipt Date: 20050706
  Transmission Date: 20060218
  Serious: Yes (Hospitalization)
  Sender: FDA-Public Use
  Company Number: None

PATIENT
  Age: 59 Year
  Sex: Male
  Weight: 43.5453 kg

DRUGS (16)
  1. VALPROIC ACID SYRUP [Suspect]
     Indication: GRAND MAL CONVULSION
     Dosage: SEE IMAGE
     Route: 048
     Dates: start: 20041202, end: 20050103
  2. VALPROIC ACID SYRUP [Suspect]
     Indication: GRAND MAL CONVULSION
     Dosage: SEE IMAGE
     Route: 048
     Dates: start: 20050103, end: 20050405
  3. VALPROIC ACID SYRUP [Suspect]
     Indication: GRAND MAL CONVULSION
     Dosage: SEE IMAGE
     Route: 048
     Dates: start: 20050405, end: 20050502
  4. VALPROIC ACID SYRUP [Suspect]
     Indication: GRAND MAL CONVULSION
     Dosage: SEE IMAGE
     Route: 048
     Dates: start: 20050502, end: 20050525
  5. LEVOTHYROXINE [Concomitant]
  6. MULTIVITAMIN W/MINERAL [Concomitant]
  7. BACID [Concomitant]
  8. CHOLESTYRAMINE [Concomitant]
  9. METRONIDAZOLE [Concomitant]
  10. POTASSIUM CHLORIDE [Concomitant]
  11. VANCOMYCIN [Concomitant]
  12. CALCIUM CARBPMATE [Concomitant]
  13. VITAMIN D [Concomitant]
  14. CIPROFLOXACIN [Concomitant]
  15. CLINDAMYCIN [Concomitant]
  16. LEVOFLOXACIN [Concomitant]

REACTIONS (2)
  - NEUTROPENIA [None]
  - PNEUMONIA ASPIRATION [None]
